FAERS Safety Report 7944684-X (Version None)
Quarter: 2011Q4

REPORT INFORMATION
  Report Type: 
  Country: None (occurrence: None)
  Receive Date: 20111129
  Receipt Date: 20111122
  Transmission Date: 20120403
  Serious: Yes (Hospitalization)
  Sender: FDA-Public Use
  Company Number: NL-AMGEN-NLDSP2011061844

PATIENT
  Age: 42 Year
  Sex: Female

DRUGS (7)
  1. CYCLOPHOSPHAMIDE [Suspect]
     Indication: BREAST CANCER
     Dosage: 950 MG, UNK
     Route: 042
     Dates: start: 20111107, end: 20111107
  2. ZOLEDRONIC ACID [Suspect]
     Indication: BREAST CANCER
     Dosage: 4 MG, UNK
     Route: 042
     Dates: start: 20111107, end: 20111107
  3. NEULASTA [Suspect]
     Indication: CHEMOTHERAPY
     Dosage: UNK
     Dates: start: 20111101
  4. GRANISETRON [Suspect]
     Indication: PROPHYLAXIS
  5. DEXAMETHASONE [Suspect]
  6. ADRIAMYCIN PFS [Suspect]
     Indication: BREAST CANCER
     Dosage: 95 MG, UNK
     Route: 042
     Dates: start: 20111107, end: 20111107
  7. TAXOTERE [Suspect]
     Indication: BREAST CANCER
     Dosage: 140 MG, UNK
     Route: 042
     Dates: start: 20111107, end: 20111107

REACTIONS (2)
  - PERIODONTITIS [None]
  - FEBRILE NEUTROPENIA [None]
